FAERS Safety Report 8926912 (Version 2)
Quarter: 2013Q1

REPORT INFORMATION
  Report Type: Report from Study
  Country: DE (occurrence: DE)
  Receive Date: 20121127
  Receipt Date: 20130205
  Transmission Date: 20140127
  Serious: Yes (Hospitalization)
  Sender: FDA-Public Use
  Company Number: DE-PFIZER INC-2012293044

PATIENT
  Age: 50 Year
  Sex: Male
  Weight: 105 kg

DRUGS (14)
  1. GENOTROPIN [Suspect]
     Indication: GROWTH HORMONE DEFICIENCY
     Dosage: 0.3 MG, 1X/DAYFREQUENCY, 7 INJECTIONS/WEEK
     Route: 058
     Dates: start: 20020219
  2. LEVOTHYROXINE [Concomitant]
     Indication: HYPOTHYROIDISM
     Dosage: UNK
     Dates: start: 19971115
  3. CORTISONE ACETATE [Concomitant]
     Indication: BLOOD CORTICOTROPHIN DECREASED
     Dosage: UNK
     Dates: start: 19971115
  4. DESMOPRESSIN [Concomitant]
     Indication: BLOOD ANTIDIURETIC HORMONE DECREASED
     Dosage: UNK
     Dates: start: 19971115
  5. TESTOSTERONE [Concomitant]
     Indication: FOLLICLE-STIMULATING HORMONE DEFICIENCY
     Dosage: UNK
     Dates: start: 19971215
  6. TESTOSTERONE [Concomitant]
     Indication: LUTEINISING HORMONE DEFICIENCY
  7. TESTOSTERONE [Concomitant]
     Indication: HYPOGONADISM MALE
  8. LAMICTAL ^BURROUGHS WELLCOME^ [Concomitant]
     Indication: EPILEPSY
     Dosage: UNK
     Dates: start: 19971215
  9. LAMICTAL ^BURROUGHS WELLCOME^ [Concomitant]
     Indication: CONVULSION
  10. CALCIUM [Concomitant]
     Indication: OSTEOPENIA
     Dosage: UNK
     Dates: start: 20010215
  11. SALMETEROL [Concomitant]
     Indication: ASTHMA
     Dosage: UNK
     Dates: start: 20010615
  12. SEPRAM [Concomitant]
     Indication: DEPRESSION
     Dosage: UNK
     Dates: start: 20010615
  13. MIRTAZAPINE [Concomitant]
     Indication: DEPRESSION
     Dosage: UNK
     Dates: start: 20020615
  14. PANCREATIN [Concomitant]
     Indication: GASTROENTERITIS
     Dosage: UNK
     Dates: start: 20010715

REACTIONS (1)
  - Arthropathy [Unknown]
